FAERS Safety Report 5241180-8 (Version None)
Quarter: 2007Q1

REPORT INFORMATION
  Report Type: 
  Country: None (occurrence: None)
  Receive Date: 20070220
  Receipt Date: 20070207
  Transmission Date: 20070707
  Serious: Yes (Other)
  Sender: FDA-Public Use
  Company Number: PHNU2006DE04158

PATIENT
  Sex: Male
  Weight: 106 kg

DRUGS (3)
  1. TRILEPTAL [Suspect]
     Indication: EPILEPSY
     Dosage: 750 MG/D
     Route: 048
     Dates: start: 20060901
  2. LEVOTHYROXINE SODIUM [Concomitant]
     Dosage: 150 UG/D
     Route: 048
     Dates: start: 20041201
  3. ASPIRIN [Concomitant]
     Dosage: 300 MG/D
     Route: 048
     Dates: start: 20050501

REACTIONS (3)
  - DEPRESSION [None]
  - DISTURBANCE IN ATTENTION [None]
  - DRUG LEVEL BELOW THERAPEUTIC [None]
